FAERS Safety Report 7250048-7 (Version None)
Quarter: 2011Q1

REPORT INFORMATION
  Report Type: 
  Country: None (occurrence: None)
  Receive Date: 20110128
  Receipt Date: 20101223
  Transmission Date: 20110831
  Serious: Yes (Other)
  Sender: FDA-Public Use
  Company Number: US-BAYER-200941191NA

PATIENT
  Sex: Female
  Weight: 67.727 kg

DRUGS (20)
  1. VALIUM [Concomitant]
     Indication: BIPOLAR DISORDER
     Route: 048
     Dates: start: 20090413
  2. YASMIN [Suspect]
     Indication: ACNE
  3. CALCIUM D [Concomitant]
     Dates: start: 20090413
  4. LEXAPRO [Concomitant]
     Indication: BIPOLAR DISORDER
  5. CITALOPRAM [Concomitant]
     Route: 048
  6. KLONOPIN [Concomitant]
     Dosage: 1 AND A HALF TABLET
     Route: 048
  7. CLARITIN [Concomitant]
     Dosage: 10 MG (DAILY DOSE), QD, ORAL
     Route: 048
     Dates: start: 20090413
  8. YAZ [Suspect]
     Indication: ACNE
  9. DIAZEPAM [Concomitant]
     Dosage: DAILY AS NEEDED
     Route: 048
  10. ALLEGRA [Concomitant]
     Dosage: DIALY AS NEEDED
     Route: 048
  11. PREVACID [Concomitant]
     Dosage: DAILY DOSE 30 MG
     Route: 048
  12. OXYCET [Concomitant]
     Dosage: UNK
     Dates: start: 20090413
  13. YAZ [Suspect]
     Indication: CONTRACEPTION
     Dosage: SAMPLES RECEIVED AT YEARLY GYNECOLOGIC EXAMS. DOES NOT RECALL QUANTITY.
     Route: 048
     Dates: start: 20080501, end: 20090615
  14. PERCOCET [Concomitant]
     Indication: PAIN
     Dates: start: 20090413
  15. ZOLOFT [Concomitant]
     Dosage: 100 MG (DAILY DOSE), QD, ORAL
     Route: 048
  16. LOPRESSOR [Concomitant]
     Dosage: BID AS NEEDED
     Route: 048
  17. YASMIN [Suspect]
     Indication: CONTRACEPTION
     Dosage: SAMPLES RECEIVED AT YEARLY GYNECOLOGIC EXAMS. DOES NOT RECALL QUANTITY.
     Dates: start: 20040101, end: 20060615
  18. YASMIN [Suspect]
     Indication: PREMENSTRUAL SYNDROME
  19. YAZ [Suspect]
     Indication: PREMENSTRUAL SYNDROME
  20. WELLBUTRIN [Concomitant]
     Indication: BIPOLAR DISORDER
     Route: 048
     Dates: start: 20090413

REACTIONS (7)
  - CHOLECYSTITIS [None]
  - MENTAL DISORDER [None]
  - CHOLELITHIASIS [None]
  - GALLBLADDER CHOLESTEROLOSIS [None]
  - GALLBLADDER DISORDER [None]
  - CHOLECYSTITIS CHRONIC [None]
  - PAIN [None]
